FAERS Safety Report 21467371 (Version 4)
Quarter: 2023Q2

REPORT INFORMATION
  Report Type: Spontaneous
  Country: US (occurrence: US)
  Receive Date: 20221017
  Receipt Date: 20230407
  Transmission Date: 20230721
  Serious: No
  Sender: FDA-Public Use
  Company Number: US-KARYOPHARM-2022KPT001133

PATIENT

DRUGS (10)
  1. XPOVIO [Suspect]
     Active Substance: SELINEXOR
     Indication: Plasma cell myeloma
     Dosage: 60 MG, WEEKLY
     Route: 048
     Dates: start: 20220920, end: 202209
  2. XPOVIO [Suspect]
     Active Substance: SELINEXOR
     Dosage: 40 MG, WEEKLY
     Route: 048
     Dates: start: 2022
  3. XPOVIO [Suspect]
     Active Substance: SELINEXOR
     Dosage: 20 MG, DAY 1 AND 15 OF A 28 DAY CYCLE
     Route: 048
     Dates: end: 20230207
  4. ZOFRAN [Concomitant]
     Active Substance: ONDANSETRON HYDROCHLORIDE
  5. EMEND [Concomitant]
     Active Substance: APREPITANT
  6. DEXAMETHASONE [Concomitant]
     Active Substance: DEXAMETHASONE
  7. ACYCLOVIR [Concomitant]
     Active Substance: ACYCLOVIR
  8. KYPROLIS [Concomitant]
     Active Substance: CARFILZOMIB
  9. OLANZAPINE [Concomitant]
     Active Substance: OLANZAPINE
  10. ZOLPIDEM TARTRATE [Concomitant]
     Active Substance: ZOLPIDEM TARTRATE

REACTIONS (5)
  - Drug intolerance [Unknown]
  - Nausea [Unknown]
  - Diarrhoea [Not Recovered/Not Resolved]
  - Decreased appetite [Not Recovered/Not Resolved]
  - Vomiting [Unknown]

NARRATIVE: CASE EVENT DATE: 20220901
